FAERS Safety Report 18148616 (Version 1)
Quarter: 2020Q3

REPORT INFORMATION
  Report Type: Spontaneous
  Country: US (occurrence: US)
  Receive Date: 20200813
  Receipt Date: 20200813
  Transmission Date: 20201103
  Serious: Yes (Disabling, Other)
  Sender: FDA-Public Use
  Company Number: US-PURDUE-USA-2020-0160968

PATIENT
  Sex: Female

DRUGS (1)
  1. OXYCONTIN [Suspect]
     Active Substance: OXYCODONE HYDROCHLORIDE
     Indication: PRODUCT USED FOR UNKNOWN INDICATION
     Dosage: UNK
     Route: 048
     Dates: start: 201106

REACTIONS (8)
  - Imprisonment [Unknown]
  - Abnormal behaviour [Unknown]
  - Mental disorder [Unknown]
  - Road traffic accident [Unknown]
  - Pain [Unknown]
  - Post-traumatic stress disorder [Unknown]
  - Sexual abuse [Unknown]
  - Drug dependence [Recovered/Resolved]
